FAERS Safety Report 20636799 (Version 10)
Quarter: 2023Q1

REPORT INFORMATION
  Report Type: Report from Study
  Country: AT (occurrence: AT)
  Receive Date: 20220325
  Receipt Date: 20230130
  Transmission Date: 20230418
  Serious: Yes (Hospitalization, Other)
  Sender: FDA-Public Use
  Company Number: AT-ROCHE-3017431

PATIENT
  Age: 48 Year
  Sex: Female
  Weight: 58 kg

DRUGS (71)
  1. PACLITAXEL [Suspect]
     Active Substance: PACLITAXEL
     Indication: HER2 positive breast cancer
     Dosage: 260 MILLIGRAM/SQ. METER, Q3W
     Route: 042
     Dates: start: 20190724, end: 20190912
  2. TRASTUZUMAB [Suspect]
     Active Substance: TRASTUZUMAB
     Indication: HER2 positive breast cancer
     Dosage: 6 MILLIGRAM/KILOGRAM, Q3W
     Route: 042
     Dates: start: 20190724, end: 20190912
  3. ADO-TRASTUZUMAB EMTANSINE [Suspect]
     Active Substance: ADO-TRASTUZUMAB EMTANSINE
     Indication: HER2 positive breast cancer
     Dosage: MOST RECENT DOSE PRIOR TO THE EVENT: 03/JUL/2020
     Route: 042
     Dates: start: 20191014, end: 20200518
  4. ADO-TRASTUZUMAB EMTANSINE [Suspect]
     Active Substance: ADO-TRASTUZUMAB EMTANSINE
     Dosage: MOST RECENT DOSE PRIOR TO AE 03/JUL/2020
     Route: 042
     Dates: start: 20200703, end: 20200703
  5. FAM-TRASTUZUMAB DERUXTECAN-NXKI [Suspect]
     Active Substance: FAM-TRASTUZUMAB DERUXTECAN-NXKI
     Indication: HER2 positive breast cancer
     Dosage: MOST RECENT DOSE PRIOR TO AE 31/JAN/2022
     Route: 042
     Dates: start: 20220110
  6. LAPATINIB [Suspect]
     Active Substance: LAPATINIB
     Indication: HER2 positive breast cancer
     Dosage: MOST RECENT DOSE PRIOR TO THE EVENT: 09/JAN/2021
     Route: 048
     Dates: start: 20200923
  7. LAPATINIB [Suspect]
     Active Substance: LAPATINIB
     Dosage: 250 MILLIGRAM
     Route: 048
     Dates: start: 20200923, end: 20201228
  8. LAPATINIB [Suspect]
     Active Substance: LAPATINIB
     Dosage: MOST RECENT DOSE PRIOR TO AE 16/DEC/2021
     Route: 048
     Dates: start: 20210109, end: 20211216
  9. PERTUZUMAB [Suspect]
     Active Substance: PERTUZUMAB
     Indication: HER2 positive breast cancer
     Dosage: 420 MILLIGRAM, Q3W
     Route: 042
     Dates: start: 20190724, end: 20190912
  10. CAPECITABINE [Suspect]
     Active Substance: CAPECITABINE
     Indication: HER2 positive breast cancer
     Dosage: MOST RECENT DOSE PRIOR TO THE EVENT: 09/JAN/2021
     Route: 048
     Dates: start: 20200923
  11. CAPECITABINE [Suspect]
     Active Substance: CAPECITABINE
     Dosage: 500 MILLIGRAM
     Route: 048
     Dates: start: 20200923, end: 20201220
  12. CAPECITABINE [Suspect]
     Active Substance: CAPECITABINE
     Dosage: 500 MILLIGRAM, 1 TIMES IN 4 DAY
     Route: 048
     Dates: start: 20210109, end: 20211209
  13. HYDROMORPHONE HYDROCHLORIDE [Concomitant]
     Active Substance: HYDROMORPHONE HYDROCHLORIDE
     Dosage: UNK, ONGOING = CHECKED
     Route: 065
     Dates: start: 20190716
  14. HYDROMORPHONE HYDROCHLORIDE [Concomitant]
     Active Substance: HYDROMORPHONE HYDROCHLORIDE
     Dosage: 2 MILLIGRAM, BID
     Route: 048
     Dates: start: 20190716, end: 20200927
  15. HYDROMORPHONE HYDROCHLORIDE [Concomitant]
     Active Substance: HYDROMORPHONE HYDROCHLORIDE
     Dosage: 2 MILLIGRAM, QD
     Route: 048
     Dates: start: 20220207
  16. HYDROMORPHONE HYDROCHLORIDE [Concomitant]
     Active Substance: HYDROMORPHONE HYDROCHLORIDE
     Dosage: 1.3 MILLIGRAM, PRN
     Route: 048
     Dates: start: 20190716
  17. ALPRAZOLAM [Concomitant]
     Active Substance: ALPRAZOLAM
     Dosage: 0.5 MILLIGRAM, PRN
     Route: 048
     Dates: start: 20190715
  18. ALPRAZOLAM [Concomitant]
     Active Substance: ALPRAZOLAM
     Dosage: 0.5 MILLIGRAM, PRN
     Route: 048
     Dates: start: 201907
  19. DEXAMETHASONE [Concomitant]
     Active Substance: DEXAMETHASONE
     Indication: COVID-19
     Dosage: UNK, ONGOING = CHECKED
     Route: 065
     Dates: start: 20220110
  20. DEXAMETHASONE [Concomitant]
     Active Substance: DEXAMETHASONE
     Dosage: 8 MILLIGRAM
     Route: 042
     Dates: start: 20190704, end: 20190912
  21. DEXAMETHASONE [Concomitant]
     Active Substance: DEXAMETHASONE
     Dosage: 6 MILLIGRAM, QD
     Route: 065
     Dates: start: 20210302, end: 20210304
  22. DEXAMETHASONE [Concomitant]
     Active Substance: DEXAMETHASONE
     Dosage: 8 MILLIGRAM, Q3W
     Route: 042
     Dates: start: 20220110
  23. DEXAMETHASONE [Concomitant]
     Active Substance: DEXAMETHASONE
     Dosage: UNK
     Route: 065
     Dates: start: 20220113, end: 20220114
  24. DEXAMETHASONE [Concomitant]
     Active Substance: DEXAMETHASONE
     Dosage: UNK
     Route: 065
     Dates: start: 20220111, end: 20220112
  25. DEXAMETHASONE [Concomitant]
     Active Substance: DEXAMETHASONE
     Dosage: UNK
     Route: 065
     Dates: start: 20220115, end: 20220323
  26. PANTOPRAZOLE SODIUM [Concomitant]
     Active Substance: PANTOPRAZOLE SODIUM
     Indication: COVID-19
     Dosage: UNK (ONGOING = CHECKED)
     Route: 065
     Dates: start: 20190701
  27. PANTOPRAZOLE SODIUM [Concomitant]
     Active Substance: PANTOPRAZOLE SODIUM
     Dosage: 40 MILLIGRAM, QD, ONGOING = CHECKED
     Route: 048
     Dates: start: 20190701
  28. PANTOPRAZOLE SODIUM [Concomitant]
     Active Substance: PANTOPRAZOLE SODIUM
     Dosage: 40 MILLIGRAM, QD, ONGOING = CHECKED
     Route: 048
     Dates: start: 20210222
  29. POLYETHYLENE GLYCOL 4000 [Concomitant]
     Active Substance: POLYETHYLENE GLYCOL 4000
     Dosage: UNK, ONGOING = CHECKED
     Route: 065
     Dates: start: 20190705
  30. POLYETHYLENE GLYCOL 4000 [Concomitant]
     Active Substance: POLYETHYLENE GLYCOL 4000
     Dosage: 10 GRAM, Q3D, ONGOING = CHECKED
     Route: 048
     Dates: start: 20190705
  31. CITALOPRAM [Concomitant]
     Active Substance: CITALOPRAM HYDROBROMIDE
     Dosage: 20 MILLIGRAM, QD (ONGOING = CHECKED )
     Route: 048
     Dates: start: 20190715
  32. CITALOPRAM [Concomitant]
     Active Substance: CITALOPRAM HYDROBROMIDE
     Dosage: 20 MILLIGRAM, ONGOING = CHECKED
     Route: 048
     Dates: start: 201907
  33. ACETAMINOPHEN [Concomitant]
     Active Substance: ACETAMINOPHEN
     Dosage: UNK, ONGOING = CHECKED
     Route: 065
     Dates: start: 20190701
  34. ACETAMINOPHEN [Concomitant]
     Active Substance: ACETAMINOPHEN
     Dosage: 500 MILLIGRAM, PRN
     Route: 048
     Dates: start: 20190701
  35. SUCRALAN [Concomitant]
     Dosage: UNK, ONGOING = CHECKED
     Route: 065
     Dates: start: 20190701
  36. SUCRALAN [Concomitant]
     Dosage: 1 GRAM PM
     Route: 048
     Dates: start: 20190701
  37. DRONABINOL [Concomitant]
     Active Substance: DRONABINOL
     Dosage: UNK, ONGOING = CHECKED
     Route: 065
     Dates: start: 20210705
  38. DRONABINOL [Concomitant]
     Active Substance: DRONABINOL
     Dosage: 2.5 PERCENT, 2 DROP-2 DROP-2 DROP
     Route: 048
     Dates: start: 20190716, end: 20210804
  39. DRONABINOL [Concomitant]
     Active Substance: DRONABINOL
     Dosage: 2.5 PERCENT,ONGOING = CHECKED
     Route: 048
     Dates: start: 20210705
  40. CEOLAT [Concomitant]
     Dosage: UNK, ONGOING = CHECKED
     Route: 065
     Dates: start: 20190815
  41. CEOLAT [Concomitant]
     Dosage: 1 GRAM, OTHER UP TO 3 X DAILY 10 ML
     Route: 048
     Dates: start: 20190815
  42. ASCORBIC ACID\CALCIUM PHOSPHATE\CHOLECALCIFEROL\CITRIC ACID MONOHYDRAT [Concomitant]
     Active Substance: ASCORBIC ACID\CALCIUM PHOSPHATE\CHOLECALCIFEROL\CITRIC ACID MONOHYDRATE
     Dosage: UNK, ONGOING = CHECKED
     Route: 065
     Dates: start: 20190717
  43. ASCORBIC ACID\CALCIUM PHOSPHATE\CHOLECALCIFEROL\CITRIC ACID MONOHYDRAT [Concomitant]
     Active Substance: ASCORBIC ACID\CALCIUM PHOSPHATE\CHOLECALCIFEROL\CITRIC ACID MONOHYDRATE
     Dosage: 500 MILLIGRAM, ONGOING = CHECKED
     Route: 048
     Dates: start: 20190717
  44. ZOFRAN [Concomitant]
     Active Substance: ONDANSETRON HYDROCHLORIDE
     Indication: COVID-19
     Dosage: 8 MILLIGRAM, PRN
     Route: 048
     Dates: start: 20190701
  45. ZOFRAN [Concomitant]
     Active Substance: ONDANSETRON HYDROCHLORIDE
     Dosage: 4 MILLIGRAM, QD
     Route: 048
     Dates: start: 20210302, end: 20210302
  46. LOPERAMIDE HYDROCHLORIDE [Concomitant]
     Active Substance: LOPERAMIDE HYDROCHLORIDE
     Indication: Diarrhoea
     Dosage: UNK,ONGOING = CHECKED
     Route: 065
     Dates: start: 20210215
  47. LOPERAMIDE HYDROCHLORIDE [Concomitant]
     Active Substance: LOPERAMIDE HYDROCHLORIDE
     Dosage: UNK, PRN
     Route: 048
     Dates: start: 202102
  48. LENDORM [Concomitant]
     Active Substance: BROTIZOLAM
     Indication: Insomnia
     Dosage: UNK,ONGOING = CHECKED
     Route: 065
     Dates: start: 20211229
  49. LENDORM [Concomitant]
     Active Substance: BROTIZOLAM
     Dosage: 0.25 MILLIGRAM PRN
     Route: 048
     Dates: start: 20211229
  50. LOVENOX [Concomitant]
     Active Substance: ENOXAPARIN SODIUM
     Indication: COVID-19
     Dosage: 40 MILLIGRAM, QD
     Route: 030
     Dates: start: 20210302, end: 20210305
  51. ACETAMINOPHEN [Concomitant]
     Active Substance: ACETAMINOPHEN
     Indication: COVID-19
     Dosage: 1 GRAM, PRN
     Route: 048
     Dates: start: 20210302, end: 20210303
  52. VALACYCLOVIR HYDROCHLORIDE [Concomitant]
     Active Substance: VALACYCLOVIR HYDROCHLORIDE
     Dosage: 500 MILLIGRAM, QD
     Route: 048
     Dates: start: 20190716, end: 20191011
  53. AMOXICILLIN\CLAVULANATE POTASSIUM [Concomitant]
     Active Substance: AMOXICILLIN\CLAVULANATE POTASSIUM
     Indication: Influenza
     Dosage: 875 MILLIGRAM, BID
     Route: 048
     Dates: start: 20200527, end: 20200602
  54. OLANZAPINE [Concomitant]
     Active Substance: OLANZAPINE
     Dosage: 10 MILLIGRAM, QD OTHER 0-0-1/2
     Route: 048
     Dates: start: 20190821, end: 20190904
  55. OLANZAPINE [Concomitant]
     Active Substance: OLANZAPINE
     Dosage: 10 MILLIGRAM, QD OTHER 0-0-1/2
     Route: 048
     Dates: start: 20190904, end: 20200926
  56. TRAZODONE HYDROCHLORIDE [Concomitant]
     Active Substance: TRAZODONE HYDROCHLORIDE
     Dosage: 150 MILLIGRAM, QD
     Route: 048
     Dates: start: 20190716, end: 20200926
  57. EUTHYROX [Concomitant]
     Active Substance: LEVOTHYROXINE SODIUM
     Dosage: 25 MILLIGRAM, QD
     Route: 048
     Dates: start: 20200930, end: 20210108
  58. EUTHYROX [Concomitant]
     Active Substance: LEVOTHYROXINE SODIUM
     Dosage: 75 MILLIGRAM, QD
     Route: 048
     Dates: start: 201906
  59. EUTHYROX [Concomitant]
     Active Substance: LEVOTHYROXINE SODIUM
     Dosage: 50 MILLIGRAM, QD
     Route: 048
     Dates: start: 20190703, end: 20200929
  60. EUTHYROX [Concomitant]
     Active Substance: LEVOTHYROXINE SODIUM
     Dosage: 25 MICROGRAM, QD
     Route: 048
     Dates: start: 20200930, end: 20210108
  61. EUTHYROX [Concomitant]
     Active Substance: LEVOTHYROXINE SODIUM
     Dosage: 50 MICROGRAM, QD
     Route: 048
     Dates: start: 20190703, end: 20200929
  62. EUTHYROX [Concomitant]
     Active Substance: LEVOTHYROXINE SODIUM
     Dosage: 75 MICROGRAM, QD
     Route: 048
     Dates: start: 201906
  63. NEURONTIN [Concomitant]
     Active Substance: GABAPENTIN
     Dosage: 300 MILLIGRAM, BID
     Route: 048
     Dates: start: 201908, end: 201908
  64. ZOFRAN [Concomitant]
     Active Substance: ONDANSETRON HYDROCHLORIDE
     Indication: COVID-19
     Dosage: 8 MILLIGRAM, PRN
     Route: 042
     Dates: start: 20190704, end: 20200703
  65. ZOFRAN [Concomitant]
     Active Substance: ONDANSETRON HYDROCHLORIDE
     Dosage: 8 MILLIGRAM, Q3W (ONGOING = CHECKED)
     Route: 042
     Dates: start: 20220110
  66. ZOFRAN [Concomitant]
     Active Substance: ONDANSETRON HYDROCHLORIDE
     Indication: COVID-19
     Dosage: 8 MILLIGRAM, BID
     Route: 067
     Dates: start: 20190705, end: 20190914
  67. DEXAMETHASONE [Concomitant]
     Active Substance: DEXAMETHASONE
     Indication: COVID-19
     Dosage: 8 MILLIGRAM
     Route: 048
     Dates: start: 20190705, end: 20190914
  68. DEXAMETHASONE [Concomitant]
     Active Substance: DEXAMETHASONE
     Dosage: 6 MILLIGRAM, QD
     Route: 048
     Dates: start: 20210302, end: 20210304
  69. NEULASTA [Concomitant]
     Active Substance: PEGFILGRASTIM
     Dosage: UNK
     Route: 065
     Dates: start: 20220420
  70. EMEND [Concomitant]
     Active Substance: APREPITANT
     Dosage: UNK
     Route: 065
     Dates: start: 20220621
  71. URSODIOL [Concomitant]
     Active Substance: URSODIOL
     Dosage: UNK
     Route: 065
     Dates: start: 20220401

REACTIONS (6)
  - Intracranial pressure increased [Recovered/Resolved]
  - Gamma-glutamyltransferase increased [Not Recovered/Not Resolved]
  - Pyrexia [Recovered/Resolved]
  - Insomnia [Not Recovered/Not Resolved]
  - Iron deficiency anaemia [Recovered/Resolved]
  - Vascular device infection [Recovered/Resolved]

NARRATIVE: CASE EVENT DATE: 20211227
